FAERS Safety Report 7447453-2 (Version None)
Quarter: 2011Q2

REPORT INFORMATION
  Report Type: 
  Country: None (occurrence: None)
  Receive Date: 20110429
  Receipt Date: 20110216
  Transmission Date: 20111010
  Serious: No
  Sender: FDA-Public Use
  Company Number: US-ASTRAZENECA-2011SE09016

PATIENT
  Sex: Female

DRUGS (14)
  1. PRILOSEC [Suspect]
     Route: 048
  2. LIPITOR [Concomitant]
  3. MUSCLE RELAXANT [Concomitant]
  4. ADVAIR DISKUS 100/50 [Suspect]
     Dosage: 500/50 MCG MULTIDOSE POWDER INHALER
     Route: 065
  5. NEXIUM [Suspect]
     Route: 048
  6. DIOVAN HCT [Concomitant]
  7. NASACORT [Concomitant]
  8. ARTHRITIS MEDICATION [Concomitant]
  9. ADVAIR DISKUS 100/50 [Suspect]
     Dosage: 250/50 MCG MULTIDOSE POWDER INHALER 1 PUFF ONECE DAILY
     Route: 065
  10. BENADRYL [Concomitant]
  11. ADVAIR DISKUS 100/50 [Suspect]
     Indication: ASTHMA
     Dosage: 250/50 MCG MULTIDOSE POWDER INHALER 1 PUFF TWICE DAILY EVERY OTHER DAY
     Route: 065
     Dates: start: 20090101
  12. ALBUTEROL [Concomitant]
  13. NEURONTIN [Concomitant]
  14. ASTELIN [Concomitant]

REACTIONS (9)
  - RESPIRATORY DISORDER [None]
  - ABDOMINAL PAIN [None]
  - WHEEZING [None]
  - GASTROOESOPHAGEAL REFLUX DISEASE [None]
  - ABDOMINAL DISCOMFORT [None]
  - ABDOMINAL DISTENSION [None]
  - HEADACHE [None]
  - DRUG INEFFECTIVE [None]
  - HYPERSENSITIVITY [None]
